FAERS Safety Report 20763236 (Version 2)
Quarter: 2023Q4

REPORT INFORMATION
  Report Type: Spontaneous
  Country: CN (occurrence: CN)
  Receive Date: 20220428
  Receipt Date: 20231006
  Transmission Date: 20240109
  Serious: Yes (Other)
  Sender: FDA-Public Use
  Company Number: CN-BAYER-2022A061971

PATIENT
  Age: 57 Year
  Sex: Male

DRUGS (2)
  1. ULTRAVIST [Suspect]
     Active Substance: IOPROMIDE
     Indication: Computerised tomogram head
     Dosage: 60 ML, ONCE
     Route: 040
     Dates: start: 20220406, end: 20220406
  2. ULTRAVIST [Suspect]
     Active Substance: IOPROMIDE
     Indication: Computerised tomogram neck

REACTIONS (6)
  - Suffocation feeling [Recovering/Resolving]
  - Rash erythematous [Recovered/Resolved]
  - Blood pressure increased [Recovering/Resolving]
  - Blood pressure increased [Recovering/Resolving]
  - Blister [Recovered/Resolved]
  - Wheezing [Recovering/Resolving]

NARRATIVE: CASE EVENT DATE: 20220406
